FAERS Safety Report 15407909 (Version 1)
Quarter: 2018Q3

REPORT INFORMATION
  Report Type: Spontaneous
  Country: ES (occurrence: ES)
  Receive Date: 20180920
  Receipt Date: 20180920
  Transmission Date: 20181010
  Serious: Yes (Life-Threatening, Hospitalization)
  Sender: FDA-Public Use
  Company Number: ES-009507513-1809ESP006216

PATIENT
  Age: 63 Year
  Sex: Male
  Weight: 70.5 kg

DRUGS (19)
  1. IDEOS [Concomitant]
     Active Substance: CALCIUM CARBONATE\CHOLECALCIFEROL
     Dosage: 1 DF, Q12H
     Route: 048
     Dates: start: 20180829
  2. DISGREN [Concomitant]
     Route: 048
     Dates: start: 201804, end: 201808
  3. PLETAL [Concomitant]
     Active Substance: CILOSTAZOL
     Dosage: 1 DF, Q12H
     Route: 048
     Dates: start: 20150211
  4. ADIRO [Concomitant]
     Active Substance: ASPIRIN
     Dosage: 1 DF, QD
     Route: 048
     Dates: start: 20180829
  5. SULPIRIDE [Concomitant]
     Active Substance: SULPIRIDE
     Route: 048
     Dates: start: 20180806, end: 201808
  6. TRANGOREX [Concomitant]
     Active Substance: AMIODARONE HYDROCHLORIDE
     Dosage: 1 DF, QD
     Route: 048
     Dates: start: 20180829
  7. HYDROCHLOROTHIAZIDE (+) IRBESARTAN [Concomitant]
     Active Substance: HYDROCHLOROTHIAZIDE\IRBESARTAN
     Dosage: 1 DF, QD
     Route: 048
     Dates: start: 20080402
  8. LORAZEPAM. [Concomitant]
     Active Substance: LORAZEPAM
     Dosage: 1 DF, QD
     Route: 048
     Dates: start: 20180829
  9. FENOFIBRATE. [Concomitant]
     Active Substance: FENOFIBRATE
     Dosage: 1 DF, QD
     Route: 048
     Dates: start: 20170222
  10. POLARAMINE (ACETAMINOPHEN (+) CHLORPHENIRAMINE MALEATE) [Concomitant]
     Active Substance: ACETAMINOPHEN\CHLORPHENIRAMINE MALEATE
     Route: 048
     Dates: start: 20180529, end: 201807
  11. OTOCERUM [Concomitant]
     Route: 001
     Dates: start: 20180726, end: 201807
  12. AMOXICILINA CINFA [Concomitant]
     Route: 048
     Dates: start: 20180622, end: 201807
  13. OMEPRAZOLE. [Concomitant]
     Active Substance: OMEPRAZOLE
     Dosage: 1 DF, QD
     Route: 048
     Dates: start: 20100407
  14. BILAXTEN [Concomitant]
     Active Substance: BILASTINE
     Route: 048
     Dates: start: 20180726, end: 201808
  15. BETAHISTINE [Concomitant]
     Active Substance: BETAHISTINE
     Route: 048
     Dates: start: 20180726, end: 201808
  16. HEMOVAS [Concomitant]
     Dosage: 1 DF, Q12H
     Route: 048
     Dates: start: 20180409
  17. ROSUVASTATINE STADA [Concomitant]
     Dosage: 1 DF, QD
     Route: 048
     Dates: start: 20180125
  18. RISTFOR [Suspect]
     Active Substance: METFORMIN HYDROCHLORIDE\SITAGLIPTIN PHOSPHATE
     Route: 048
     Dates: start: 201608, end: 201808
  19. MOTILIUM [Concomitant]
     Active Substance: DOMPERIDONE
     Route: 048
     Dates: start: 20180731, end: 201808

REACTIONS (3)
  - Seizure [Recovered/Resolved]
  - Brain injury [Recovered/Resolved]
  - Lactic acidosis [Recovered/Resolved]

NARRATIVE: CASE EVENT DATE: 201808
